FAERS Safety Report 5277145-X (Version None)
Quarter: 2007Q1

REPORT INFORMATION
  Report Type: 
  Country: None (occurrence: None)
  Receive Date: 20061213
  Receipt Date: 20041102
  Transmission Date: 20070707
  Serious: No
  Sender: FDA-Public Use
  Company Number: 2004UW21030

PATIENT
  Age: 48 Year
  Sex: Female

DRUGS (8)
  1. SEROQUEL [Suspect]
     Indication: ANXIETY
     Dosage: 300 MG HS PO
     Route: 048
     Dates: start: 20031124, end: 20040312
  2. SEROQUEL [Suspect]
     Indication: MAJOR DEPRESSION
     Dosage: 300 MG HS PO
     Route: 048
     Dates: start: 20031124, end: 20040312
  3. CELEXA [Concomitant]
  4. STELAZINE [Concomitant]
  5. DEPAKOTE [Concomitant]
  6. ARTANE [Concomitant]
  7. LIPITOR [Concomitant]
  8. GLUCOCORTICOSTEROIDS [Concomitant]

REACTIONS (2)
  - DIABETES MELLITUS [None]
  - WEIGHT INCREASED [None]
